FAERS Safety Report 5656580-1 (Version None)
Quarter: 2008Q1

REPORT INFORMATION
  Report Type: 
  Country: None (occurrence: None)
  Receive Date: 20080310
  Receipt Date: 20080303
  Transmission Date: 20080703
  Serious: Yes (Death)
  Sender: FDA-Public Use
  Company Number: GB-JNJFOC-20080300427

PATIENT
  Age: 85 Year
  Sex: Male
  Weight: 56 kg

DRUGS (5)
  1. SIMVASTATIN [Suspect]
     Route: 048
  2. SIMVASTATIN [Suspect]
     Indication: TRANSIENT ISCHAEMIC ATTACK
     Route: 048
  3. ASPIRIN [Suspect]
     Indication: TRANSIENT ISCHAEMIC ATTACK
     Route: 048
  4. PERSANTINE [Suspect]
     Route: 048
  5. PERSANTINE [Suspect]
     Indication: TRANSIENT ISCHAEMIC ATTACK
     Route: 048

REACTIONS (3)
  - CEREBRAL HAEMORRHAGE [None]
  - DIZZINESS [None]
  - FALL [None]
